FAERS Safety Report 23902774 (Version 2)
Quarter: 2024Q2

REPORT INFORMATION
  Report Type: Spontaneous
  Country: US (occurrence: US)
  Receive Date: 20240527
  Receipt Date: 20240613
  Transmission Date: 20240716
  Serious: No
  Sender: FDA-Public Use
  Company Number: US-SANOFI-02053717

PATIENT
  Age: 77 Year
  Sex: Female

DRUGS (1)
  1. TOUJEO MAX [Suspect]
     Active Substance: INSULIN GLARGINE
     Indication: Type 2 diabetes mellitus
     Dosage: 25 IU
     Route: 065

REACTIONS (2)
  - Hyperglycaemia [Unknown]
  - Device issue [Unknown]

NARRATIVE: CASE EVENT DATE: 20240515
